FAERS Safety Report 13380665 (Version 3)
Quarter: 2017Q3

REPORT INFORMATION
  Report Type: Report from Study
  Country: US (occurrence: US)
  Receive Date: 20170329
  Receipt Date: 20170919
  Transmission Date: 20171127
  Serious: No
  Sender: FDA-Public Use
  Company Number: US-ALEXION PHARMACEUTICALS INC.-A201702965

PATIENT
  Sex: Female

DRUGS (1)
  1. STRENSIQ [Suspect]
     Active Substance: ASFOTASE ALFA
     Indication: HYPOPHOSPHATASIA
     Route: 058

REACTIONS (12)
  - Pain in extremity [Unknown]
  - Balance disorder [Unknown]
  - Peripheral swelling [Unknown]
  - Muscle strain [Unknown]
  - Muscle swelling [Unknown]
  - Pain [Unknown]
  - Bursitis [Unknown]
  - Limb mass [Unknown]
  - Fall [Unknown]
  - Inflammation [Unknown]
  - Limb injury [Unknown]
  - Arthralgia [Unknown]
